FAERS Safety Report 20383715 (Version 1)
Quarter: 2022Q1

REPORT INFORMATION
  Report Type: Spontaneous
  Country: US (occurrence: US)
  Receive Date: 20220127
  Receipt Date: 20220127
  Transmission Date: 20220423
  Serious: No
  Sender: FDA-Public Use
  Company Number: US-ALLERGAN-2101052US

PATIENT
  Age: 6 Decade
  Sex: Female

DRUGS (4)
  1. BOTOX [Suspect]
     Active Substance: ONABOTULINUMTOXINA
     Indication: Laryngospasm
     Dosage: ACTUAL: EVERY 3 MONTHS AT LARYNX, 6-8 UNITS
  2. BOTOX [Suspect]
     Active Substance: ONABOTULINUMTOXINA
     Indication: Migraine
     Dosage: ACTUAL: EVERY 3 MONTHS 200 UNITS
  3. BOTOX [Suspect]
     Active Substance: ONABOTULINUMTOXINA
     Dosage: ACTUAL: EVERY 3 MONTHS 200 UNITS
     Dates: start: 20190905, end: 20190905
  4. UNSPECIFIED INGREDIENT [Concomitant]
     Active Substance: UNSPECIFIED INGREDIENT
     Indication: Hypersensitivity

REACTIONS (2)
  - Off label use [Unknown]
  - Therapeutic response decreased [Unknown]
